FAERS Safety Report 4982394-1 (Version None)
Quarter: 2006Q2

REPORT INFORMATION
  Report Type: 
  Country: None (occurrence: None)
  Receive Date: 20060424
  Receipt Date: 20060424
  Transmission Date: 20061013
  Serious: Yes (Hospitalization)
  Sender: FDA-Public Use
  Company Number: None

PATIENT
  Sex: Male

DRUGS (16)
  1. GLEEVEC [Suspect]
     Indication: ASTROCYTOMA
     Dosage: 500 MG BID PO
     Route: 048
     Dates: start: 20060310, end: 20060415
  2. HYDROXYUREA [Suspect]
     Indication: ASTROCYTOMA
     Dosage: 500 MG BID PO
     Route: 048
     Dates: start: 20060310, end: 20060415
  3. SYNTHROID [Concomitant]
  4. ASPIRIN [Concomitant]
  5. LIPITOR [Concomitant]
  6. FLOMAX [Concomitant]
  7. DECADRON [Concomitant]
  8. ZOLOFT [Concomitant]
  9. PEPCID [Concomitant]
  10. MULTI-VITAMIN [Concomitant]
  11. AMBIEN [Concomitant]
  12. SAW PALMETTO [Concomitant]
  13. TYLENOL (CAPLET) [Concomitant]
  14. VITAMIN B COMPLEX CAP [Concomitant]
  15. LOVENOX [Concomitant]
  16. DILANTIN [Concomitant]

REACTIONS (6)
  - DRUG TOXICITY [None]
  - HAEMATOCRIT DECREASED [None]
  - INFECTION [None]
  - NEUTROPENIA [None]
  - PYREXIA [None]
  - WHITE BLOOD CELL COUNT DECREASED [None]
